FAERS Safety Report 14827115 (Version 1)
Quarter: 2018Q2

REPORT INFORMATION
  Report Type: Spontaneous
  Country: US (occurrence: US)
  Receive Date: 20180430
  Receipt Date: 20180430
  Transmission Date: 20180711
  Serious: No
  Sender: FDA-Public Use
  Company Number: US-ABBVIE-18P-163-2217294-00

PATIENT
  Age: 64 Year
  Sex: Female
  Weight: 55.39 kg

DRUGS (2)
  1. CREON [Suspect]
     Active Substance: PANCRELIPASE AMYLASE\PANCRELIPASE LIPASE\PANCRELIPASE PROTEASE
     Indication: PANCREATIC FAILURE
     Dosage: 1 WITH EACH MEAL AND SNACK
     Route: 048
     Dates: start: 201710
  2. CLONAZEPAM. [Concomitant]
     Active Substance: CLONAZEPAM
     Indication: BIPOLAR DISORDER
     Route: 065

REACTIONS (1)
  - Muscle spasms [Recovering/Resolving]

NARRATIVE: CASE EVENT DATE: 201711
